FAERS Safety Report 7059983-6 (Version None)
Quarter: 2010Q4

REPORT INFORMATION
  Report Type: 
  Country: None (occurrence: None)
  Receive Date: 20101025
  Receipt Date: 20101021
  Transmission Date: 20110411
  Serious: Yes (Life-Threatening)
  Sender: FDA-Public Use
  Company Number: IT-JNJFOC-20101005839

PATIENT
  Sex: Female

DRUGS (1)
  1. LEVOFLOXACIN [Suspect]
     Indication: COUGH
     Route: 048

REACTIONS (3)
  - DIARRHOEA [None]
  - LARYNGEAL OEDEMA [None]
  - RESPIRATORY DISTRESS [None]
